FAERS Safety Report 7177582-2 (Version None)
Quarter: 2010Q4

REPORT INFORMATION
  Report Type: 
  Country: None (occurrence: None)
  Receive Date: 20101220
  Receipt Date: 20101214
  Transmission Date: 20110411
  Serious: Yes (Other)
  Sender: FDA-Public Use
  Company Number: AU-PFIZER INC-2010174972

PATIENT
  Age: 23 Year
  Sex: Female

DRUGS (1)
  1. ZOLOFT [Suspect]
     Dosage: 100 MG, 1X/DAY

REACTIONS (1)
  - GOODPASTURE'S SYNDROME [None]
